FAERS Safety Report 21346421 (Version 1)
Quarter: 2022Q3

REPORT INFORMATION
  Report Type: Spontaneous
  Country: GB (occurrence: GB)
  Receive Date: 20220917
  Receipt Date: 20220917
  Transmission Date: 20221026
  Serious: Yes (Other)
  Sender: FDA-Public Use
  Company Number: None

PATIENT
  Age: 85 Year
  Sex: Female
  Weight: 72 kg

DRUGS (15)
  1. QUETIAPINE FUMARATE [Suspect]
     Active Substance: QUETIAPINE FUMARATE
     Indication: Product used for unknown indication
     Dosage: 25 MILLIGRAM, TABLET (UNCOATED)
     Route: 048
     Dates: start: 20220823, end: 20220829
  2. ATORVASTATIN [Concomitant]
     Active Substance: ATORVASTATIN
     Indication: Product used for unknown indication
     Dosage: 80 MILLIGRAM, QD, (UNCOATED)
     Route: 048
     Dates: start: 20220701
  3. ANUSOL NOS [Concomitant]
     Active Substance: BALSAM PERU\BENZYL BENZOATE\BISMUTH HYDROXIDE\BISMUTH SUBGALLATE\HYDROCORTISONE ACETATE\ZINC OXIDE
     Indication: Product used for unknown indication
     Dosage: UNK, BID (AFTER MOTIONS)
     Route: 065
     Dates: start: 20220624
  4. CALCIUM CARBONATE\SODIUM ALGINATE\SODIUM BICARBONATE [Concomitant]
     Active Substance: CALCIUM CARBONATE\SODIUM ALGINATE\SODIUM BICARBONATE
     Indication: Product used for unknown indication
     Dosage: 10 MILLILITER, AS NECESSARY, AFTER MEALS AND AT BEDTIME
     Route: 065
     Dates: start: 20220801, end: 20220826
  5. BISOPROLOL [Concomitant]
     Active Substance: BISOPROLOL
     Indication: Product used for unknown indication
     Dosage: 2.5 MILLIGRAM ,QD, (UNCOATED)
     Route: 048
     Dates: start: 20220701
  6. CARBOMER [Concomitant]
     Active Substance: CARBOMER
     Indication: Product used for unknown indication
     Dosage: UNK, BID, AS NECESSARY, (USE IN BOTH EYES)
     Dates: start: 20220801, end: 20220826
  7. CETIRIZINE [Concomitant]
     Active Substance: CETIRIZINE HYDROCHLORIDE
     Indication: Product used for unknown indication
     Dosage: UNK, QD, (UNCOATED)
     Route: 048
     Dates: start: 20220829
  8. EDOXABAN [Concomitant]
     Active Substance: EDOXABAN
     Indication: Product used for unknown indication
     Dosage: 60 MILLIGRAM, QD, IN THE MORNING, (UNCOATED)
     Route: 048
     Dates: start: 20220701
  9. NITROGLYCERIN [Concomitant]
     Active Substance: NITROGLYCERIN
     Indication: Chest pain
     Dosage: 800 UG, UNK, AS NECESSARY, (400MICROGRAMS/DOSE PUMP )
     Route: 060
     Dates: start: 20220801, end: 20220826
  10. IBUPROFEN [Concomitant]
     Active Substance: IBUPROFEN
     Indication: Product used for unknown indication
     Dosage: 3(UNIT-UNK) QD, (APPLY TO LEFT KNEE)
     Route: 065
     Dates: start: 20220801, end: 20220826
  11. POLYETHYLENE GLYCOL 3350\POTASSIUM CHLORIDE\SODIUM BICARBONATE\SODIUM [Concomitant]
     Active Substance: POLYETHYLENE GLYCOL 3350\POTASSIUM CHLORIDE\SODIUM BICARBONATE\SODIUM CHLORIDE
     Indication: Constipation
     Dosage: UNK, QD(1-3 SACHETS)(AS NECESSARY)
     Route: 048
     Dates: start: 20220615
  12. MIRTAZAPINE [Concomitant]
     Active Substance: MIRTAZAPINE
     Indication: Product used for unknown indication
     Dosage: 30 MILLIGRAM, QD, AT NIGHT, (UNCOATED)
     Route: 048
     Dates: start: 20220701
  13. OMEPRAZOLE [Concomitant]
     Active Substance: OMEPRAZOLE
     Indication: Product used for unknown indication
     Dosage: 40 MILLIGRAM, QD, ONE MANE AND ONE NOCTE, (GASTRO-RESISTANT)
     Route: 065
     Dates: start: 20220701
  14. ACETAMINOPHEN [Concomitant]
     Active Substance: ACETAMINOPHEN
     Indication: Product used for unknown indication
     Dosage: 2000 MILLIGRAM, QD, (UNCOATED)
     Route: 048
     Dates: start: 20220701
  15. ROPINIROLE [Concomitant]
     Active Substance: ROPINIROLE
     Indication: Product used for unknown indication
     Dosage: 2 MILLIGRAM, QD, AT NIGHT, (UNCOATED)
     Route: 048
     Dates: start: 20220701

REACTIONS (3)
  - Swelling [Recovered/Resolved]
  - Swelling of eyelid [Unknown]
  - Vision blurred [Unknown]

NARRATIVE: CASE EVENT DATE: 20220826
